FAERS Safety Report 9825029 (Version 1)
Quarter: 2013Q4

REPORT INFORMATION
  Report Type: Spontaneous
  Country: US (occurrence: None)
  Receive Date: 20131025
  Receipt Date: 20131025
  Transmission Date: 20140711
  Serious: Yes (Other)
  Sender: FDA-Public Use
  Company Number: AP356-00073-SPO-US

PATIENT
  Age: 69 Year
  Sex: Female

DRUGS (7)
  1. BELVIQ (LORCASERIN HYDROCHLORIDE) [Suspect]
     Indication: WEIGHT DECREASED
     Route: 048
     Dates: start: 20130816, end: 20130817
  2. ATENOLOL (ATENOLOL) [Concomitant]
  3. METFORMIN (METFORMIN) [Concomitant]
  4. AVAPRO (IRBESARTAN) [Concomitant]
  5. PLAVIX (CLOPIDOGREL) [Concomitant]
  6. SINGULAIR (MONTELUKAST) [Concomitant]
  7. LIPITOR (ATORVASTATIN CALCIUM) [Concomitant]

REACTIONS (3)
  - Gait disturbance [None]
  - Fatigue [None]
  - Balance disorder [None]
